FAERS Safety Report 22368517 (Version 1)
Quarter: 2023Q2

REPORT INFORMATION
  Report Type: Spontaneous
  Country: US (occurrence: US)
  Receive Date: 20230525
  Receipt Date: 20230525
  Transmission Date: 20230721
  Serious: Yes (Other)
  Sender: FDA-Public Use
  Company Number: US-BAUSCHBL-2023BNL004427

PATIENT
  Age: 39 Year
  Sex: Male

DRUGS (3)
  1. DEXAMETHASONE [Suspect]
     Active Substance: DEXAMETHASONE
     Indication: Acute respiratory failure
     Route: 065
  2. REMDESIVIR [Suspect]
     Active Substance: REMDESIVIR
     Indication: Acute respiratory failure
     Route: 065
  3. OXYGEN [Suspect]
     Active Substance: OXYGEN
     Indication: COVID-19
     Route: 045

REACTIONS (1)
  - Therapy non-responder [Unknown]
